FAERS Safety Report 7110100-3 (Version None)
Quarter: 2010Q4

REPORT INFORMATION
  Report Type: 
  Country: None (occurrence: None)
  Receive Date: 20101118
  Receipt Date: 20101108
  Transmission Date: 20110411
  Serious: Yes (Disabling)
  Sender: FDA-Public Use
  Company Number: US-JNJFOC-20100903810

PATIENT
  Sex: Male
  Weight: 83.01 kg

DRUGS (9)
  1. ARESTIN [Suspect]
     Indication: PERIODONTAL INFECTION
     Route: 004
  2. TENORMIN [Concomitant]
     Indication: HYPERTENSION
  3. MODURETIC 5-50 [Concomitant]
     Indication: HYPERTENSION
     Dosage: 5/50
     Route: 065
  4. K-DUR [Concomitant]
     Indication: ILL-DEFINED DISORDER
     Route: 065
  5. JANUVIA [Concomitant]
     Indication: DIABETES MELLITUS
     Route: 065
  6. ZOCOR [Concomitant]
     Indication: BLOOD CHOLESTEROL INCREASED
     Route: 065
  7. PROSCAR [Concomitant]
     Indication: ILL-DEFINED DISORDER
     Route: 065
  8. AMBIEN [Concomitant]
     Indication: ILL-DEFINED DISORDER
     Dosage: PRN
     Route: 065
  9. ASPIRIN [Concomitant]
     Indication: ILL-DEFINED DISORDER
     Route: 065

REACTIONS (3)
  - FEELING JITTERY [None]
  - INFLUENZA LIKE ILLNESS [None]
  - INSOMNIA [None]
